FAERS Safety Report 9436076 (Version 1)
Quarter: 2013Q3

REPORT INFORMATION
  Report Type: Spontaneous
  Country: MX (occurrence: MX)
  Receive Date: 20130801
  Receipt Date: 20130801
  Transmission Date: 20140515
  Serious: Yes (Other)
  Sender: FDA-Public Use
  Company Number: PHHY2013MX079794

PATIENT
  Age: 25 Year
  Sex: Female

DRUGS (3)
  1. HYDRALAZINE [Suspect]
     Indication: PRE-ECLAMPSIA
     Dosage: UNK UKN, UNK
  2. MAGNESIUM SULFATE [Suspect]
     Indication: PRE-ECLAMPSIA
     Dosage: UNK UKN, UNK
  3. BETAMETHASONE [Suspect]
     Indication: PRE-ECLAMPSIA
     Dosage: UNK UKN, UNK

REACTIONS (4)
  - Blood sodium decreased [Recovered/Resolved]
  - Dyspnoea [Recovered/Resolved]
  - Maternal exposure during pregnancy [Unknown]
  - Oedema [Recovered/Resolved]
